FAERS Safety Report 19032186 (Version 1)
Quarter: 2021Q1

REPORT INFORMATION
  Report Type: Report from Study
  Country: BR (occurrence: BR)
  Receive Date: 20210319
  Receipt Date: 20210319
  Transmission Date: 20210420
  Serious: Yes (Life-Threatening, Hospitalization)
  Sender: FDA-Public Use
  Company Number: BR-TAKEDA-2021TUS017685

PATIENT
  Age: 43 Year
  Sex: Female

DRUGS (1)
  1. HUMAN IMMUNOGLOBULIN; HYALURONIDASE [Suspect]
     Active Substance: HUMAN IMMUNOGLOBULIN G\HYALURONIDASE RECOMBINANT HUMAN
     Indication: PRODUCT USED FOR UNKNOWN INDICATION
     Route: 042

REACTIONS (15)
  - Blood pressure decreased [Unknown]
  - Hospitalisation [Unknown]
  - Malaise [Unknown]
  - Somnolence [Unknown]
  - Injection site discolouration [Unknown]
  - Pyrexia [Unknown]
  - Nausea [Unknown]
  - Adverse reaction [Unknown]
  - Injection site pain [Unknown]
  - Vascular pain [Unknown]
  - Abdominal pain upper [Unknown]
  - Dizziness [Unknown]
  - Immune system disorder [Unknown]
  - Injection site swelling [Unknown]
  - Poor venous access [Unknown]
